FAERS Safety Report 6466367-8 (Version None)
Quarter: 2009Q4

REPORT INFORMATION
  Report Type: 
  Country: None (occurrence: None)
  Receive Date: 20091201
  Receipt Date: 20091201
  Transmission Date: 20100525
  Serious: Yes (Hospitalization, Other)
  Sender: FDA-Public Use
  Company Number: None

PATIENT
  Age: 93 Year
  Sex: Female
  Weight: 49.4421 kg

DRUGS (2)
  1. TYGACIL [Suspect]
     Indication: KLEBSIELLA INFECTION
     Dosage: 100MG X1, THEN 50MG Q12H Q12H IV
     Route: 042
     Dates: start: 20091104, end: 20091110
  2. TYGACIL [Suspect]
     Indication: MULTIPLE-DRUG RESISTANCE
     Dosage: 100MG X1, THEN 50MG Q12H Q12H IV
     Route: 042
     Dates: start: 20091104, end: 20091110

REACTIONS (2)
  - ALANINE AMINOTRANSFERASE INCREASED [None]
  - ASPARTATE AMINOTRANSFERASE INCREASED [None]
